FAERS Safety Report 7685045-0 (Version None)
Quarter: 2011Q3

REPORT INFORMATION
  Report Type: 
  Country: None (occurrence: None)
  Receive Date: 20110801
  Receipt Date: 20110719
  Transmission Date: 20111222
  Serious: Yes (Hospitalization)
  Sender: FDA-Public Use
  Company Number: AEUSA201100191

PATIENT
  Age: 50 Year
  Sex: Female

DRUGS (24)
  1. FLORINEF [Concomitant]
  2. AMBIEN [Concomitant]
  3. ONDANSETRON [Concomitant]
  4. ADVAIR DISKUS 100/50 [Concomitant]
  5. LEXAPRO [Concomitant]
  6. MORPHINE SULFATE [Concomitant]
  7. MUCOMYST [Concomitant]
  8. ETHAMBUTOL HYDROCHLORIDE [Concomitant]
  9. TAGAMET [Concomitant]
  10. MIDODRINE HYDROCHLORIDE [Concomitant]
  11. AMIKACIN [Concomitant]
  12. INTERFERON [Concomitant]
  13. MORPHINE SULFATE [Concomitant]
  14. PROVENTIL [Concomitant]
  15. VENTOLIN HFA [Concomitant]
  16. PROTONIX [Concomitant]
  17. ACETAMINOPHEN [Concomitant]
  18. PROLASTIN-C [Suspect]
     Indication: ALPHA-1 ANTI-TRYPSIN DEFICIENCY
     Dosage: 4000 MG, TOTAL, IV
     Route: 042
     Dates: start: 20110511
  19. PROLASTIN-C [Suspect]
  20. PROLASTIN-C [Suspect]
  21. RIFADIN [Concomitant]
  22. VALIUM [Concomitant]
  23. DELTASONE [Concomitant]
  24. ZITHROMAX [Concomitant]

REACTIONS (9)
  - ALANINE AMINOTRANSFERASE INCREASED [None]
  - BLOOD BILIRUBIN INCREASED [None]
  - BLOOD ALKALINE PHOSPHATASE INCREASED [None]
  - ASPARTATE AMINOTRANSFERASE INCREASED [None]
  - NAUSEA [None]
  - HEADACHE [None]
  - DEHYDRATION [None]
  - VOMITING [None]
  - DIARRHOEA [None]
